FAERS Safety Report 6370685-1 (Version None)
Quarter: 2009Q3

REPORT INFORMATION
  Report Type: 
  Country: None (occurrence: None)
  Receive Date: 20090923
  Receipt Date: 20070611
  Transmission Date: 20100115
  Serious: Yes (Other)
  Sender: FDA-Public Use
  Company Number: US-ASTRAZENECA-2006UW25172

PATIENT
  Age: 405 Month
  Sex: Female
  Weight: 106.6 kg

DRUGS (12)
  1. SEROQUEL [Suspect]
     Route: 048
     Dates: end: 20050819
  2. SEROQUEL [Suspect]
     Dosage: STRENGTH-100 MG, 200 MG, 300MG
     Route: 048
     Dates: start: 20070213
  3. HALDOL [Concomitant]
  4. RISPERDAL [Concomitant]
  5. WELLBUTRIN [Concomitant]
     Dates: start: 20061130
  6. CLONAZEPAM [Concomitant]
     Dosage: STRENGTH- 0.5 MG, 1 MG
     Dates: start: 20070212
  7. TRAZODONE [Concomitant]
     Dates: start: 20070212
  8. METFORMIN HCL [Concomitant]
     Route: 048
     Dates: start: 20061130
  9. GLIPIZIDE [Concomitant]
     Dates: start: 20070209
  10. FLONASE [Concomitant]
     Dosage: 50 UG TWO SPRAY EACH NOSTRIL DAILY
     Route: 045
     Dates: start: 20070411
  11. LANTUS [Concomitant]
     Dosage: 18 UNITS QHS
     Dates: start: 20061130
  12. LIPITOR [Concomitant]
     Route: 048
     Dates: start: 20061130

REACTIONS (5)
  - DIABETES MELLITUS [None]
  - DIABETES MELLITUS INADEQUATE CONTROL [None]
  - INSULIN-REQUIRING TYPE 2 DIABETES MELLITUS [None]
  - TYPE 1 DIABETES MELLITUS [None]
  - TYPE 2 DIABETES MELLITUS [None]
